FAERS Safety Report 6912975-7 (Version None)
Quarter: 2010Q3

REPORT INFORMATION
  Report Type: 
  Country: None (occurrence: None)
  Receive Date: 20100806
  Receipt Date: 20090424
  Transmission Date: 20110219
  Serious: No
  Sender: FDA-Public Use
  Company Number: US-PFIZER INC-2004229101US

PATIENT
  Sex: Female
  Weight: 68 kg

DRUGS (3)
  1. DETROL LA [Suspect]
     Indication: MICTURITION URGENCY
     Dosage: 4 MG, 1X/DAY
     Route: 048
     Dates: start: 20030101
  2. GLUCOPHAGE [Concomitant]
     Route: 048
  3. GLUCOTROL [Concomitant]
     Route: 048

REACTIONS (7)
  - DRUG EFFECT DECREASED [None]
  - DRUG INEFFECTIVE [None]
  - DRY MOUTH [None]
  - HEADACHE [None]
  - MICTURITION URGENCY [None]
  - NOCTURIA [None]
  - URINARY INCONTINENCE [None]
